FAERS Safety Report 7024575-1 (Version None)
Quarter: 2010Q4

REPORT INFORMATION
  Report Type: 
  Country: None (occurrence: None)
  Receive Date: 20101001
  Receipt Date: 20100916
  Transmission Date: 20110411
  Serious: Yes (Hospitalization, Other)
  Sender: FDA-Public Use
  Company Number: DE-ASTRAZENECA-2010SE35093

PATIENT
  Age: 23 Year
  Sex: Female
  Weight: 68 kg

DRUGS (4)
  1. PROPOFOL [Suspect]
     Indication: OESOPHAGOGASTRODUODENOSCOPY
     Route: 042
     Dates: start: 20100608, end: 20100608
  2. BUSCOPAN [Concomitant]
     Dates: start: 20100608
  3. IMERON 400 MCT [Concomitant]
     Dates: start: 20100608
  4. DORMICUM [Concomitant]
     Dates: start: 20100608

REACTIONS (1)
  - HEPATITIS ACUTE [None]
